FAERS Safety Report 7176923-X (Version None)
Quarter: 2010Q4

REPORT INFORMATION
  Report Type: 
  Country: None (occurrence: None)
  Receive Date: 20101215
  Receipt Date: 20101215
  Transmission Date: 20110411
  Serious: Yes (Death)
  Sender: FDA-Public Use
  Company Number: None

PATIENT
  Age: 43 Year
  Sex: Male
  Weight: 110 kg

DRUGS (1)
  1. LEVETIRACETAM [Suspect]
     Indication: EPILEPSY
     Dosage: 500MG QAM PO 750 MG QHS PO
     Route: 048

REACTIONS (5)
  - CYANOSIS [None]
  - DEPRESSION [None]
  - FATIGUE [None]
  - PULSE ABSENT [None]
  - SUDDEN UNEXPLAINED DEATH IN EPILEPSY [None]
